FAERS Safety Report 13765387 (Version 4)
Quarter: 2019Q3

REPORT INFORMATION
  Report Type: Spontaneous
  Country: US (occurrence: US)
  Receive Date: 20170718
  Receipt Date: 20190702
  Transmission Date: 20191004
  Serious: Yes (Hospitalization, Other)
  Sender: FDA-Public Use
  Company Number: US-BRISTOL-MYERS SQUIBB COMPANY-BMS-2017-061659

PATIENT
  Sex: Male

DRUGS (2)
  1. DASATINIB. [Suspect]
     Active Substance: DASATINIB
     Indication: CHRONIC MYELOID LEUKAEMIA
     Dosage: 140 MG, QD
     Route: 048
     Dates: start: 201610
  2. DASATINIB. [Suspect]
     Active Substance: DASATINIB
     Indication: PRODUCT USED FOR UNKNOWN INDICATION
     Dosage: 20 MILLIGRAM (3 TABS), DAILY
     Route: 048

REACTIONS (7)
  - Abdominal pain upper [Unknown]
  - Chest pain [Unknown]
  - Dyspnoea [Unknown]
  - Swelling [Unknown]
  - Blindness [Unknown]
  - Eye haemorrhage [Unknown]
  - Cardiac disorder [Unknown]
